FAERS Safety Report 6288254-0 (Version None)
Quarter: 2009Q3

REPORT INFORMATION
  Report Type: 
  Country: None (occurrence: None)
  Receive Date: 20090723
  Receipt Date: 20090728
  Transmission Date: 20100115
  Serious: Yes (Hospitalization, Other)
  Sender: FDA-Public Use
  Company Number: DSU-2008-00749

PATIENT
  Age: 85 Year
  Sex: Male
  Weight: 72.5755 kg

DRUGS (2)
  1. WELCHOL [Suspect]
     Indication: HYPERLIPIDAEMIA
     Dosage: 3750 MG (1875 MG,BID),PER ORAL
     Route: 048
  2. ZETIA [Suspect]
     Indication: HYPERLIPIDAEMIA
     Dosage: 10 MG (10 MG,QD),PER ORAL
     Route: 048

REACTIONS (1)
  - PANCREATITIS ACUTE [None]
